FAERS Safety Report 17851372 (Version 2)
Quarter: 2020Q4

REPORT INFORMATION
  Report Type: Spontaneous
  Country: US (occurrence: US)
  Receive Date: 20200602
  Receipt Date: 20201013
  Transmission Date: 20210113
  Serious: Yes (Other)
  Sender: FDA-Public Use
  Company Number: US-MYLANLABS-2020M1053198

PATIENT
  Age: 71 Year
  Sex: Male
  Weight: 91 kg

DRUGS (28)
  1. VALSARTAN. [Suspect]
     Active Substance: VALSARTAN
     Indication: HYPERTENSION
     Dosage: UNK
     Dates: start: 20161216, end: 20170316
  2. CALCITRIOL. [Concomitant]
     Active Substance: CALCITRIOL
     Indication: CHRONIC KIDNEY DISEASE
     Dosage: UNK
  3. INSULIN [Concomitant]
     Active Substance: INSULIN NOS
     Indication: DIABETES MELLITUS
     Dosage: UNK
  4. SIMVASTATIN. [Concomitant]
     Active Substance: SIMVASTATIN
     Indication: CORONARY ARTERY DISEASE
     Dosage: UNK
  5. VITAMIN D                          /00107901/ [Concomitant]
     Active Substance: ERGOCALCIFEROL
     Indication: VITAMIN D DEFICIENCY
     Dosage: 500 INTERNATIONAL UNIT, MONTHLY
     Dates: start: 2018, end: 2019
  6. FOLIC ACID. [Concomitant]
     Active Substance: FOLIC ACID
     Indication: ROUTINE HEALTH MAINTENANCE
     Dosage: UNK
     Dates: start: 2017, end: 2017
  7. VALSARTAN TABLETS, USP [Suspect]
     Active Substance: VALSARTAN
     Dosage: UNK
     Dates: start: 20150924, end: 20151224
  8. VALSARTAN. [Suspect]
     Active Substance: VALSARTAN
     Dosage: UNK
     Dates: start: 20170609, end: 20171112
  9. HUMALOG [Concomitant]
     Active Substance: INSULIN LISPRO
     Indication: DIABETES MELLITUS
     Dosage: UNK
     Dates: start: 200401
  10. VALSARTAN. [Suspect]
     Active Substance: VALSARTAN
     Dosage: UNK
     Dates: start: 20171113, end: 20180213
  11. COENZYME Q10 [Concomitant]
     Active Substance: DIETARY SUPPLEMENT\UBIDECARENONE
     Indication: MYALGIA
     Dosage: 100 TO 200 MG
     Dates: start: 20161016, end: 201810
  12. VALSARTAN. [Suspect]
     Active Substance: VALSARTAN
     Indication: HYPERTENSION
     Dosage: UNK UNK, QD
     Dates: start: 20171206, end: 20181103
  13. VALSARTAN TABLETS, USP [Suspect]
     Active Substance: VALSARTAN
     Dosage: UNK
     Dates: start: 20160618, end: 20161213
  14. VALSARTAN. [Suspect]
     Active Substance: VALSARTAN
     Dosage: 320 MILLIGRAM, QD
     Route: 048
     Dates: start: 20181206, end: 20191011
  15. CHLORTHALIDONE. [Concomitant]
     Active Substance: CHLORTHALIDONE
     Indication: HYPERTENSION
     Dosage: 25 MILLIGRAM, QD(MORNING)
     Route: 048
     Dates: start: 20181206, end: 20190521
  16. NORMODYNE [Concomitant]
     Active Substance: LABETALOL HYDROCHLORIDE
     Indication: HYPERTENSION
     Dosage: 100 MILLIGRAM, BID
     Route: 048
     Dates: start: 20181206, end: 20190928
  17. ALDACTONE [Concomitant]
     Active Substance: SPIRONOLACTONE
     Indication: HYPERTENSION
     Dosage: 25 MILLIGRAM, EVERY MORNING
     Route: 048
     Dates: start: 20181206, end: 20191110
  18. VITAMIN E                          /00110501/ [Concomitant]
     Active Substance: TOCOPHEROL
     Indication: DRY SKIN
     Dosage: UNK
     Dates: start: 2017, end: 2017
  19. VALSARTAN TABLETS, USP [Suspect]
     Active Substance: VALSARTAN
     Indication: HYPERTENSION
     Dosage: UNK
     Dates: start: 20150323, end: 20150922
  20. HUMULIN NOS [Concomitant]
     Active Substance: INSULIN HUMAN
     Indication: DIABETES MELLITUS
     Dosage: UNK
     Dates: start: 2004
  21. PRAVASTATIN. [Concomitant]
     Active Substance: PRAVASTATIN
     Indication: BLOOD CHOLESTEROL INCREASED
     Dosage: 20 MILLIGRAM, QD
     Dates: start: 20140707, end: 20151121
  22. FISH OIL [Concomitant]
     Active Substance: FISH OIL
     Indication: BLOOD CHOLESTEROL ABNORMAL
     Dosage: 2000 MILLIGRAM, QD
     Dates: start: 20160816, end: 20190816
  23. VITAMIN B [Concomitant]
     Active Substance: VITAMIN B
     Indication: VITAMIN B COMPLEX DEFICIENCY
     Dosage: UNK
     Dates: start: 20180816, end: 2018
  24. TERAZOSIN HYDROCHLORIDE. [Concomitant]
     Active Substance: TERAZOSIN HYDROCHLORIDE
     Dosage: 2 MILLIGRAM, QD
     Route: 048
     Dates: start: 20181206, end: 20190924
  25. ASPIRIN                            /00002701/ [Concomitant]
     Active Substance: ASPIRIN
     Dosage: 81 MILLIGRAM, QD
     Route: 048
  26. HYTRIN [Concomitant]
     Active Substance: TERAZOSIN HYDROCHLORIDE
     Indication: HYPERTENSION
     Dosage: UNK
  27. ALIROCUMAB [Concomitant]
     Active Substance: ALIROCUMAB
     Indication: CARDIOVASCULAR DISORDER
     Dosage: 150 MILLIGRAM EVERY OTHER WEEK
     Route: 058
     Dates: start: 20190906, end: 20191128
  28. NOVOLIN NOS [Concomitant]
     Active Substance: INSULIN HUMAN
     Dosage: 15 UNITS 3 TIME A DAY BEFORE MEAL
     Route: 058
     Dates: start: 20181206, end: 20191117

REACTIONS (1)
  - Diffuse large B-cell lymphoma stage IV [Unknown]

NARRATIVE: CASE EVENT DATE: 20190816
